FAERS Safety Report 20450648 (Version 1)
Quarter: 2022Q1

REPORT INFORMATION
  Report Type: Spontaneous
  Country: US (occurrence: None)
  Receive Date: 20220209
  Receipt Date: 20220209
  Transmission Date: 20220423
  Serious: No
  Sender: FDA-Public Use
  Company Number: None

PATIENT
  Age: 61 Year
  Sex: Male
  Weight: 170.1 kg

DRUGS (1)
  1. TRAVOPROST OPHTHALMIC [Suspect]
     Active Substance: TRAVOPROST
     Indication: Glaucoma
     Dosage: FREQUENCY : DAILY;?
     Route: 047
     Dates: start: 20211001, end: 20211015

REACTIONS (2)
  - Headache [None]
  - Pain [None]

NARRATIVE: CASE EVENT DATE: 20211001
